FAERS Safety Report 24798387 (Version 4)
Quarter: 2025Q3

REPORT INFORMATION
  Report Type: Report from Study
  Country: US (occurrence: US)
  Receive Date: 20250102
  Receipt Date: 20250711
  Transmission Date: 20251021
  Serious: No
  Sender: SUNOVION
  Company Number: US-SUMITOMO PHARMA SWITZERLAND GMBH-2024SPA006182

PATIENT

DRUGS (22)
  1. ORGOVYX [Suspect]
     Active Substance: RELUGOLIX
     Indication: Prostate cancer
     Dosage: 360 MG, SINGLE
     Route: 048
     Dates: start: 20241122, end: 20241122
  2. ORGOVYX [Suspect]
     Active Substance: RELUGOLIX
     Dosage: 120 MG, QD
     Route: 048
     Dates: start: 20241123
  3. ACYCLOVIR [Concomitant]
     Active Substance: ACYCLOVIR
     Route: 065
  4. ATORVASTATIN [Concomitant]
     Active Substance: ATORVASTATIN
     Route: 065
  5. VITAMINS [Concomitant]
     Active Substance: VITAMINS
     Route: 065
  6. NAPROXEN [Concomitant]
     Active Substance: NAPROXEN
     Route: 065
  7. FENOFIBRATE [Concomitant]
     Active Substance: FENOFIBRATE
     Route: 065
  8. FEXOFENADINE [Concomitant]
     Active Substance: FEXOFENADINE HYDROCHLORIDE
     Route: 065
  9. VITAMIN D3 [Concomitant]
     Active Substance: CHOLECALCIFEROL
     Route: 065
  10. GAS-X [Concomitant]
     Active Substance: DIMETHICONE
     Route: 065
  11. LOPERAMIDE [Concomitant]
     Active Substance: LOPERAMIDE
     Route: 065
  12. MIRALAX [Concomitant]
     Active Substance: POLYETHYLENE GLYCOL 3350
     Route: 065
  13. MOUNJARO [Concomitant]
     Active Substance: TIRZEPATIDE
     Route: 065
  14. VICKS NYQUIL [Concomitant]
     Active Substance: ACETAMINOPHEN\DEXTROMETHORPHAN HYDROBROMIDE\DOXYLAMINE SUCCINATE
     Route: 065
  15. PSEUDOEPHEDRINE [Concomitant]
     Active Substance: PSEUDOEPHEDRINE
     Route: 065
  16. TAMSULOSIN [Concomitant]
     Active Substance: TAMSULOSIN
     Route: 065
  17. BACTRIM [Concomitant]
     Active Substance: SULFAMETHOXAZOLE\TRIMETHOPRIM
     Route: 065
  18. FLUTICASONE [Concomitant]
     Active Substance: FLUTICASONE
     Route: 065
  19. CIALIS [Concomitant]
     Active Substance: TADALAFIL
     Route: 065
  20. VITAMINS [Concomitant]
     Active Substance: VITAMINS
     Route: 065
  21. BENADRYL [Concomitant]
     Active Substance: DIPHENHYDRAMINE HYDROCHLORIDE
     Route: 065
  22. IMODIUM [Concomitant]
     Active Substance: LOPERAMIDE HYDROCHLORIDE
     Route: 065

REACTIONS (5)
  - Sinusitis [Unknown]
  - Urinary tract infection [Recovering/Resolving]
  - Hot flush [Unknown]
  - Libido decreased [Unknown]
  - Fatigue [Unknown]
